FAERS Safety Report 8599552-X (Version None)
Quarter: 2012Q3

REPORT INFORMATION
  Report Type: 
  Country: None (occurrence: None)
  Receive Date: 20120816
  Receipt Date: 20120117
  Transmission Date: 20120928
  Serious: No
  Sender: FDA-Public Use
  Company Number: US-MYLANLABS-2011S1017876

PATIENT
  Age: 57 Year
  Sex: Female
  Weight: 119.75 kg

DRUGS (12)
  1. RANITIDINE [Concomitant]
     Indication: GASTROOESOPHAGEAL REFLUX DISEASE
     Route: 048
     Dates: start: 20070101
  2. MELOXICAM [Suspect]
     Indication: ARTHRITIS
     Route: 048
     Dates: start: 20100720, end: 20110815
  3. FLUTICASONE PROPIONATE [Concomitant]
     Indication: SINUS DISORDER
     Route: 045
     Dates: start: 19900101
  4. DIGOXIN [Concomitant]
     Indication: CARDIAC DISORDER
     Route: 048
     Dates: start: 19900101
  5. VITAMIN D [Concomitant]
     Route: 048
  6. METOPROLOL TARTRATE [Concomitant]
     Indication: CARDIAC DISORDER
     Route: 048
     Dates: start: 19900101
  7. FUROSEMIDE [Concomitant]
     Indication: BLOOD PRESSURE INCREASED
     Route: 048
     Dates: start: 20070101
  8. LISINOPRIL [Concomitant]
     Indication: BLOOD PRESSURE INCREASED
     Route: 048
     Dates: start: 20080101
  9. ASPIRIN [Concomitant]
     Indication: CARDIAC DISORDER
     Route: 048
     Dates: start: 20070101
  10. TRAMADOL [Concomitant]
  11. OSTEO BI-FLEX [Concomitant]
     Indication: ARTHRITIS
     Route: 048
     Dates: start: 20100101
  12. DOCUSATE SODIUM [Concomitant]
     Indication: CONSTIPATION
     Route: 048
     Dates: start: 20080101

REACTIONS (1)
  - NEPHROPATHY [None]
